FAERS Safety Report 23590151 (Version 1)
Quarter: 2024Q1

REPORT INFORMATION
  Report Type: Spontaneous
  Country: US (occurrence: US)
  Receive Date: 20240304
  Receipt Date: 20240304
  Transmission Date: 20240409
  Serious: No
  Sender: FDA-Public Use
  Company Number: US-TEVA-VS-3156656

PATIENT

DRUGS (1)
  1. AUSTEDO [Suspect]
     Active Substance: DEUTETRABENAZINE
     Indication: Dyskinesia
     Dosage: MOUTH TWICE DAILY ALONG WITH 6 MG(100043008) TABLET FOR TOTAL DOSE OF 15 MG TWICE DAILY
     Route: 065
     Dates: start: 20230424

REACTIONS (1)
  - Tremor [Unknown]
